FAERS Safety Report 9759787 (Version 2)
Quarter: 2013Q4

REPORT INFORMATION
  Report Type: Spontaneous
  Country: US (occurrence: US)
  Receive Date: 20131216
  Receipt Date: 20131216
  Transmission Date: 20140711
  Serious: No
  Sender: FDA-Public Use
  Company Number: US-GILEAD-2010-0029057

PATIENT
  Age: 45 Year
  Sex: Male
  Weight: 70.31 kg

DRUGS (8)
  1. LETAIRIS [Suspect]
     Indication: PULMONARY ARTERIAL HYPERTENSION
     Route: 048
     Dates: start: 20091009
  2. DIAZEPAM [Concomitant]
  3. NORVIR [Concomitant]
  4. LOPERAMIDE [Concomitant]
  5. LEXIVA [Concomitant]
  6. LEXAPRO [Concomitant]
  7. DAILY MULTIVITAMIN [Concomitant]
  8. TRUVADA [Concomitant]

REACTIONS (1)
  - Hepatic enzyme increased [Not Recovered/Not Resolved]
